FAERS Safety Report 17299405 (Version 1)
Quarter: 2020Q1

REPORT INFORMATION
  Report Type: Spontaneous
  Country: US (occurrence: US)
  Receive Date: 20200121
  Receipt Date: 20200121
  Transmission Date: 20200409
  Serious: No
  Sender: FDA-Public Use
  Company Number: US-BRISTOL-MYERS SQUIBB COMPANY-BMS-2020-004075

PATIENT
  Age: 92 Year
  Sex: Female

DRUGS (3)
  1. VITAMIN K [Suspect]
     Active Substance: PHYTONADIONE
     Indication: PRODUCT USED FOR UNKNOWN INDICATION
     Dosage: UNK
     Route: 065
  2. ELIQUIS [Suspect]
     Active Substance: APIXABAN
     Indication: CEREBROVASCULAR ACCIDENT PROPHYLAXIS
     Dosage: 5 MG TABLET CUT IN HALF TO 2.5, BID
     Route: 048
  3. DIURETIC [HYDROCHLOROTHIAZIDE] [Concomitant]
     Indication: PRODUCT USED FOR UNKNOWN INDICATION
     Dosage: UNK
     Route: 065

REACTIONS (4)
  - Gingival pain [Unknown]
  - Wound haemorrhage [Unknown]
  - Haemorrhoidal haemorrhage [Unknown]
  - Wrong technique in product usage process [Unknown]
